FAERS Safety Report 4479331-5 (Version None)
Quarter: 2004Q4

REPORT INFORMATION
  Report Type: 
  Country: None (occurrence: None)
  Receive Date: 20041015
  Receipt Date: 20040927
  Transmission Date: 20050328
  Serious: Yes (Death)
  Sender: FDA-Public Use
  Company Number: 2004235659US

PATIENT
  Age: 62 Year
  Sex: 0

DRUGS (3)
  1. GLYNASE [Suspect]
     Dosage: ORAL
     Route: 048
  2. DRENOL (HYDROCHLOROTHIAZIDE)TABLET [Suspect]
     Dosage: ORAL
     Route: 048
  3. LISINOPRIL HEUMANN(LISINOPRIL DIHYDRATE) TABLET [Suspect]
     Dosage: ORAL
     Route: 048

REACTIONS (2)
  - MEDICATION ERROR [None]
  - MULTIPLE DRUG OVERDOSE [None]
